FAERS Safety Report 24648377 (Version 1)
Quarter: 2024Q4

REPORT INFORMATION
  Report Type: Spontaneous
  Country: US (occurrence: US)
  Receive Date: 20241121
  Receipt Date: 20241121
  Transmission Date: 20250115
  Serious: Yes (Hospitalization)
  Sender: 3M
  Company Number: US-3MMEDICAL-2024-US-062149

PATIENT
  Age: 26 Year
  Sex: Female

DRUGS (1)
  1. SOLUPREP [Suspect]
     Active Substance: CHLORHEXIDINE GLUCONATE\ISOPROPYL ALCOHOL
     Indication: Preoperative care
     Dosage: 26 ML SINGLE USE
     Route: 061

REACTIONS (2)
  - Pruritus [Unknown]
  - Skin irritation [Unknown]

NARRATIVE: CASE EVENT DATE: 20240802
